FAERS Safety Report 5936889-4 (Version None)
Quarter: 2008Q4

REPORT INFORMATION
  Report Type: 
  Country: None (occurrence: None)
  Receive Date: 20081031
  Receipt Date: 20081022
  Transmission Date: 20090506
  Serious: Yes (Hospitalization)
  Sender: FDA-Public Use
  Company Number: DE-JNJFOC-20081005308

PATIENT
  Age: 63 Year
  Sex: Female

DRUGS (5)
  1. DOXORUBICIN HCL [Suspect]
     Indication: RENAL CELL CARCINOMA
     Route: 042
  2. TEMOZOLOMIDE [Suspect]
     Indication: RENAL CELL CARCINOMA
     Route: 048
  3. METHYLPREDNISOLONE 16MG TAB [Concomitant]
     Route: 065
  4. GLYCERINE [Concomitant]
     Route: 065
  5. THALIDOMIDE [Concomitant]
     Route: 065

REACTIONS (4)
  - ABSCESS [None]
  - BONE MARROW FAILURE [None]
  - DEVICE RELATED INFECTION [None]
  - OFF LABEL USE [None]
